FAERS Safety Report 5229979-5 (Version None)
Quarter: 2007Q1

REPORT INFORMATION
  Report Type: 
  Country: None (occurrence: None)
  Receive Date: 20070206
  Receipt Date: 20060803
  Transmission Date: 20070707
  Serious: No
  Sender: FDA-Public Use
  Company Number: US-GLAXOSMITHKLINE-A0615092A

PATIENT
  Sex: Female

DRUGS (2)
  1. PAROXETINE HCL [Suspect]
     Dosage: 10MG PER DAY
     Route: 048
     Dates: end: 20060501
  2. BIRTH CONTROL PILL [Concomitant]

REACTIONS (3)
  - ANOREXIA [None]
  - CRYING [None]
  - MOOD ALTERED [None]
